FAERS Safety Report 6393380-1 (Version None)
Quarter: 2009Q4

REPORT INFORMATION
  Report Type: 
  Country: None (occurrence: None)
  Receive Date: 20091008
  Receipt Date: 20090928
  Transmission Date: 20100525
  Serious: Yes (Other)
  Sender: FDA-Public Use
  Company Number: JP-ASTRAZENECA-2009SE00549

PATIENT
  Age: 66 Year
  Sex: Female
  Weight: 43 kg

DRUGS (11)
  1. BLOPRESS [Suspect]
     Indication: HYPERTENSION
     Route: 048
     Dates: start: 20070921, end: 20070926
  2. FLUITRAN [Suspect]
     Indication: HYPERTENSION
     Route: 048
     Dates: start: 20070923, end: 20070926
  3. PLAVIX [Concomitant]
     Indication: CEREBRAL INFARCTION
     Route: 048
     Dates: start: 20070914
  4. ARGATROBAN [Concomitant]
     Indication: CEREBRAL INFARCTION
     Route: 042
     Dates: start: 20070913, end: 20070919
  5. RADICUT [Concomitant]
     Indication: CEREBRAL INFARCTION
     Route: 042
     Dates: start: 20070913, end: 20070919
  6. GLYCEROL 2.6% [Concomitant]
     Indication: CEREBRAL INFARCTION
     Route: 042
     Dates: start: 20070913, end: 20070919
  7. LOW MOLECULAR DEXTRAN L [Concomitant]
     Indication: CEREBRAL INFARCTION
     Route: 042
     Dates: start: 20070913, end: 20070917
  8. HMG COA REDUCTASE INHIBITORS [Concomitant]
     Indication: HYPERLIPIDAEMIA
     Route: 048
     Dates: start: 20070919, end: 20071014
  9. ACDEAM [Concomitant]
     Route: 048
     Dates: start: 20070925, end: 20070928
  10. FLOMOX [Concomitant]
     Route: 048
     Dates: start: 20070925, end: 20070928
  11. SURGAM [Concomitant]
     Route: 048
     Dates: start: 20070925, end: 20070929

REACTIONS (1)
  - CEREBRAL INFARCTION [None]
